FAERS Safety Report 12598328 (Version 1)
Quarter: 2016Q3

REPORT INFORMATION
  Report Type: Spontaneous
  Country: CN (occurrence: CN)
  Receive Date: 20160727
  Receipt Date: 20160727
  Transmission Date: 20161109
  Serious: Yes (Other)
  Sender: FDA-Public Use
  Company Number: CN-FAC-000174

PATIENT
  Age: 68 Year
  Sex: Female

DRUGS (1)
  1. CEFUROXIME. [Suspect]
     Active Substance: CEFUROXIME
     Route: 031

REACTIONS (3)
  - Macular oedema [Recovered/Resolved]
  - Retinal detachment [Recovered/Resolved]
  - Off label use [Recovered/Resolved]
